FAERS Safety Report 17853323 (Version 4)
Quarter: 2020Q3

REPORT INFORMATION
  Report Type: Other
  Country: JP (occurrence: JP)
  Receive Date: 20200603
  Receipt Date: 20200723
  Transmission Date: 20201104
  Serious: Yes (Hospitalization, Other)
  Sender: FDA-Public Use
  Company Number: JP-ROCHE-2609608

PATIENT
  Age: 75 Year
  Sex: Male
  Weight: 53 kg

DRUGS (5)
  1. EMICIZUMAB. [Suspect]
     Active Substance: EMICIZUMAB
     Route: 058
     Dates: start: 20190104
  2. EMICIZUMAB. [Suspect]
     Active Substance: EMICIZUMAB
     Indication: HAEMOPHILIA A WITH ANTI FACTOR VIII
     Route: 058
     Dates: start: 20181205
  3. AMIODARONE HYDROCHLORIDE. [Concomitant]
     Active Substance: AMIODARONE HYDROCHLORIDE
     Route: 048
  4. SPIRONOLACTONE. [Concomitant]
     Active Substance: SPIRONOLACTONE
     Route: 048
  5. ECARD [Concomitant]
     Active Substance: CANDESARTAN CILEXETIL\HYDROCHLOROTHIAZIDE
     Dosage: 1TX ONCE/DAY
     Route: 048

REACTIONS (4)
  - Lacunar infarction [Not Recovered/Not Resolved]
  - Subdural haematoma [Recovering/Resolving]
  - Arteriosclerosis [Unknown]
  - Head injury [Unknown]

NARRATIVE: CASE EVENT DATE: 20200507
